FAERS Safety Report 15263822 (Version 1)
Quarter: 2018Q3

REPORT INFORMATION
  Report Type: Spontaneous
  Country: CA (occurrence: CA)
  Receive Date: 20180810
  Receipt Date: 20180810
  Transmission Date: 20181010
  Serious: Yes (Hospitalization)
  Sender: FDA-Public Use
  Company Number: CA-BAYER-2018-148902

PATIENT
  Age: 55 Year
  Sex: Male
  Weight: 102 kg

DRUGS (1)
  1. RESTORALAX [Suspect]
     Active Substance: POLYETHYLENE GLYCOL 3350
     Indication: CONSTIPATION
     Dosage: 17 G, ONCE
     Route: 048

REACTIONS (5)
  - Urticaria [Recovering/Resolving]
  - Dysphonia [Recovering/Resolving]
  - Pharyngeal oedema [Recovering/Resolving]
  - Pruritus [Recovering/Resolving]
  - Sneezing [Recovering/Resolving]
